FAERS Safety Report 6803548-5 (Version None)
Quarter: 2010Q2

REPORT INFORMATION
  Report Type: 
  Country: None (occurrence: None)
  Receive Date: 20100628
  Receipt Date: 20100618
  Transmission Date: 20101027
  Serious: Yes (Other)
  Sender: FDA-Public Use
  Company Number: JP-MERCK-1006USA03681

PATIENT
  Age: 67 Year
  Sex: Male

DRUGS (9)
  1. DECADRON [Suspect]
     Indication: MULTIPLE MYELOMA
     Route: 048
     Dates: start: 20051125, end: 20051125
  2. DECADRON [Suspect]
     Route: 048
     Dates: start: 20051019, end: 20051022
  3. DECADRON [Suspect]
     Route: 048
     Dates: start: 20051027, end: 20051030
  4. DECADRON [Suspect]
     Route: 048
     Dates: start: 20051104, end: 20051107
  5. DECADRON [Suspect]
     Route: 048
     Dates: start: 20051117, end: 20051120
  6. ONCOVIN [Concomitant]
     Indication: MULTIPLE MYELOMA
     Route: 042
     Dates: start: 20051019, end: 20051022
  7. ONCOVIN [Concomitant]
     Route: 042
     Dates: start: 20051117, end: 20051120
  8. ADRIACIN [Concomitant]
     Indication: MULTIPLE MYELOMA
     Route: 042
     Dates: start: 20051019, end: 20051022
  9. ADRIACIN [Concomitant]
     Route: 042
     Dates: start: 20051117, end: 20051120

REACTIONS (1)
  - CEREBELLAR INFARCTION [None]
